FAERS Safety Report 8287375-0 (Version None)
Quarter: 2012Q2

REPORT INFORMATION
  Report Type: 
  Country: None (occurrence: None)
  Receive Date: 20120416
  Receipt Date: 20120410
  Transmission Date: 20120825
  Serious: Yes (Other)
  Sender: FDA-Public Use
  Company Number: US-PFIZER INC-2012081009

PATIENT
  Sex: Male
  Weight: 81.633 kg

DRUGS (2)
  1. XANAX [Suspect]
     Indication: ANXIETY
     Dosage: 2 MG, 3X/DAY
     Route: 048
     Dates: start: 20080101, end: 20080101
  2. XANAX [Suspect]
     Indication: PANIC ATTACK
     Dosage: 2 MG, UNK
     Route: 048
     Dates: start: 20080101, end: 20080101

REACTIONS (8)
  - VISUAL IMPAIRMENT [None]
  - PARANOIA [None]
  - FEELING COLD [None]
  - AGGRESSION [None]
  - INSOMNIA [None]
  - DYSPEPSIA [None]
  - FEELING ABNORMAL [None]
  - EATING DISORDER [None]
